FAERS Safety Report 19803083 (Version 3)
Quarter: 2021Q3

REPORT INFORMATION
  Report Type: Spontaneous
  Country: US (occurrence: US)
  Receive Date: 20210908
  Receipt Date: 20210914
  Transmission Date: 20211014
  Serious: No
  Sender: FDA-Public Use
  Company Number: US-BIOVITRUM-2021US8085

PATIENT
  Sex: Female

DRUGS (1)
  1. KINERET [Suspect]
     Active Substance: ANAKINRA
     Indication: RHEUMATOID ARTHRITIS
     Route: 058
     Dates: start: 20210819

REACTIONS (17)
  - Fatigue [Unknown]
  - Contusion [Unknown]
  - Adverse reaction [Unknown]
  - Injection site rash [Unknown]
  - Adverse drug reaction [Unknown]
  - Rash [Unknown]
  - Injection site pain [Unknown]
  - Injection site inflammation [Recovered/Resolved]
  - Injection site erythema [Unknown]
  - Injection site urticaria [Unknown]
  - Urticaria [Unknown]
  - Injection site vesicles [Unknown]
  - Pain [Unknown]
  - Injection site pruritus [Unknown]
  - Osteopenia [Unknown]
  - Injection site hypersensitivity [Unknown]
  - Product dose omission in error [Unknown]
